FAERS Safety Report 8256242 (Version 4)
Quarter: 2012Q4

REPORT INFORMATION
  Report Type: 
  Country: US (occurrence: US)
  Receive Date: 20111121
  Receipt Date: 20121105
  Transmission Date: 20130627
  Serious: No
  Sender: FDA-Public Use
  Company Number: PHEH2011US009540

PATIENT
  Age: 65 None
  Sex: Male

DRUGS (13)
  1. LASIX [Concomitant]
     Dosage: UNK UKN, UNK
  2. SODIUM POTASSIUM TARTRATE [Concomitant]
     Dosage: UNK UKN, UNK
  3. CLONIDINE HYDROCHLORIDE [Concomitant]
     Dosage: UNK UKN, UNK
  4. COREG [Concomitant]
     Dosage: UNK UKN, UNK
  5. MYCOPHENOLATE [Concomitant]
     Dosage: UNK UKN, UNK
  6. LISINOPRIL [Concomitant]
     Dosage: UNK UKN, UNK
  7. PREDNISONE [Concomitant]
     Dosage: UNK UKN, UNK
  8. TASIGNA [Suspect]
     Indication: NEOPLASM MALIGNANT
     Dosage: 300 mg, BID
     Route: 048
     Dates: start: 20110829
  9. CIPRO [Suspect]
     Indication: UPPER RESPIRATORY TRACT INFECTION
  10. GEMFIBROZIL [Concomitant]
     Dosage: UNK UKN, UNK
  11. VALTREX [Concomitant]
     Dosage: UNK UKN, UNK
  12. LIPITOR [Concomitant]
     Dosage: UNK UKN, UNK
  13. RAPAMUNE [Concomitant]
     Dosage: UNK UKN, UNK

REACTIONS (3)
  - Abdominal pain upper [Not Recovered/Not Resolved]
  - Sinusitis [Unknown]
  - Drug interaction [Recovered/Resolved]
